FAERS Safety Report 14352071 (Version 1)
Quarter: 2018Q1

REPORT INFORMATION
  Report Type: Spontaneous
  Country: JP (occurrence: JP)
  Receive Date: 20180104
  Receipt Date: 20180104
  Transmission Date: 20180509
  Serious: Yes (Other)
  Sender: FDA-Public Use
  Company Number: JP-TEVA-2017-JP-842308

PATIENT
  Age: 18 Year
  Sex: Male

DRUGS (2)
  1. CARBOPLATIN. [Suspect]
     Active Substance: CARBOPLATIN
     Indication: CNS GERMINOMA
     Dosage: 450 MG/ME2 ON DAY 1
     Route: 065
  2. ETOPOSIDE. [Suspect]
     Active Substance: ETOPOSIDE
     Indication: CNS GERMINOMA
     Dosage: 150 MG/ME2 ON DAYS 1 TO 3
     Route: 065

REACTIONS (1)
  - Pancytopenia [Unknown]
